FAERS Safety Report 25406639 (Version 1)
Quarter: 2025Q2

REPORT INFORMATION
  Report Type: Spontaneous
  Country: US (occurrence: US)
  Receive Date: 20250606
  Receipt Date: 20250606
  Transmission Date: 20250716
  Serious: Yes (Death, Life-Threatening, Other)
  Sender: UNITED THERAPEUTICS
  Company Number: US-UNITED THERAPEUTICS-UNT-2025-018979

PATIENT
  Sex: Female

DRUGS (3)
  1. REMODULIN [Suspect]
     Active Substance: TREPROSTINIL
     Indication: Pulmonary hypertension
  2. BOSENTAN [Concomitant]
     Active Substance: BOSENTAN
     Indication: Pulmonary hypertension
  3. NITRIC OXIDE [Concomitant]
     Active Substance: NITRIC OXIDE
     Indication: Product used for unknown indication

REACTIONS (9)
  - Pulmonary hypertension [Fatal]
  - Coronavirus infection [Fatal]
  - Respiratory failure [Not Recovered/Not Resolved]
  - Bradycardia neonatal [Unknown]
  - Pulmonary hypertensive crisis [Unknown]
  - Pneumonia [Unknown]
  - Right ventricular dilatation [Unknown]
  - Right ventricular hypertrophy [Unknown]
  - Bronchus compression [Unknown]
